FAERS Safety Report 15803414 (Version 1)
Quarter: 2019Q1

REPORT INFORMATION
  Report Type: Spontaneous
  Country: GB (occurrence: GB)
  Receive Date: 20190109
  Receipt Date: 20190109
  Transmission Date: 20190417
  Serious: Yes (Hospitalization)
  Sender: FDA-Public Use
  Company Number: GB-ANIPHARMA-2018-UK-000153

PATIENT
  Age: 70 Year
  Sex: Male

DRUGS (1)
  1. INDAPAMIDE (NON-SPECIFIC) [Suspect]
     Active Substance: INDAPAMIDE
     Indication: HYPERTENSION
     Dosage: 2.5 MG DAILY
     Route: 048

REACTIONS (1)
  - Choroidal effusion [Recovered/Resolved]
